FAERS Safety Report 12956809 (Version 1)
Quarter: 2016Q4

REPORT INFORMATION
  Report Type: Report from Study
  Country: US (occurrence: US)
  Receive Date: 20161118
  Receipt Date: 20161118
  Transmission Date: 20170207
  Serious: Yes (Death, Hospitalization)
  Sender: FDA-Public Use
  Company Number: US-SA-2016SA061821

PATIENT
  Age: 12 Month
  Sex: Female
  Weight: 5.03 kg

DRUGS (5)
  1. CAMPATH [Suspect]
     Active Substance: ALEMTUZUMAB
     Indication: HISTIOCYTOSIS HAEMATOPHAGIC
     Route: 065
     Dates: start: 20150716, end: 20150719
  2. PENTAMIDINE [Concomitant]
     Active Substance: PENTAMIDINE
     Indication: PROPHYLAXIS
     Dates: start: 2015, end: 2015
  3. CAMPATH [Suspect]
     Active Substance: ALEMTUZUMAB
     Indication: HISTIOCYTOSIS HAEMATOPHAGIC
     Route: 065
     Dates: start: 20150903, end: 20150906
  4. CAMPATH [Suspect]
     Active Substance: ALEMTUZUMAB
     Indication: HISTIOCYTOSIS HAEMATOPHAGIC
     Route: 065
     Dates: start: 20150903, end: 20150906
  5. CAMPATH [Suspect]
     Active Substance: ALEMTUZUMAB
     Indication: HISTIOCYTOSIS HAEMATOPHAGIC
     Route: 065
     Dates: start: 20150716, end: 20150719

REACTIONS (18)
  - Bradycardia [Unknown]
  - Urinary tract infection [Unknown]
  - Klebsiella infection [Unknown]
  - Nodule [Unknown]
  - Multiple organ dysfunction syndrome [Fatal]
  - Skin irritation [Unknown]
  - Combined immunodeficiency [Unknown]
  - Pyrexia [Unknown]
  - Vomiting [Unknown]
  - White blood cell count increased [Unknown]
  - Cerebral ventricle dilatation [Unknown]
  - Cardiac arrest [Fatal]
  - Lower gastrointestinal haemorrhage [Unknown]
  - Mucosal inflammation [Unknown]
  - Enterobacter infection [Unknown]
  - Infection [Unknown]
  - Ammonia increased [Unknown]
  - Thyroid function test abnormal [Unknown]

NARRATIVE: CASE EVENT DATE: 201508
